FAERS Safety Report 13664730 (Version 3)
Quarter: 2017Q3

REPORT INFORMATION
  Report Type: Spontaneous
  Country: KR (occurrence: KR)
  Receive Date: 20170619
  Receipt Date: 20170728
  Transmission Date: 20171127
  Serious: Yes (Hospitalization, Other)
  Sender: FDA-Public Use
  Company Number: KR-009507513-1505KOR000314

PATIENT
  Age: 62 Year
  Sex: Female
  Weight: 64 kg

DRUGS (12)
  1. NASEA [Concomitant]
     Active Substance: RAMOSETRON HYDROCHLORIDE
     Indication: PROPHYLAXIS OF NAUSEA AND VOMITING
     Dosage: 0.1 MG, QD
     Route: 048
     Dates: start: 20141006, end: 20141008
  2. HUMULIN NOS [Concomitant]
     Active Substance: INSULIN HUMAN
     Indication: DIABETES MELLITUS
     Dosage: 16 UNIT, QD
     Route: 042
     Dates: start: 20141019, end: 20141019
  3. DEXAMETHASONE. [Concomitant]
     Active Substance: DEXAMETHASONE
     Indication: PROPHYLAXIS OF NAUSEA AND VOMITING
     Dosage: STRENGTH: 5 MG/ML, 12 MG, ONCE
     Route: 042
     Dates: start: 20141006, end: 20141006
  4. TAGAMET [Concomitant]
     Active Substance: CIMETIDINE
     Indication: PROPHYLAXIS AGAINST GASTROINTESTINAL ULCER
     Dosage: 200 MG, TID
     Route: 048
     Dates: start: 20141006, end: 20141012
  5. ALOXI [Concomitant]
     Active Substance: PALONOSETRON HYDROCHLORIDE
     Indication: PROPHYLAXIS OF NAUSEA AND VOMITING
     Dosage: 0.25 MG, ONCE
     Route: 042
     Dates: start: 20141006, end: 20141006
  6. MACPERAN [Concomitant]
     Active Substance: METOCLOPRAMIDE HYDROCHLORIDE
     Indication: PROPHYLAXIS OF NAUSEA AND VOMITING
     Dosage: 10 MG, TID
     Route: 048
     Dates: start: 20141006, end: 20141012
  7. EMEND (FOSAPREPITANT DIMEGLUMINE) [Suspect]
     Active Substance: FOSAPREPITANT DIMEGLUMINE
     Indication: PROPHYLAXIS OF NAUSEA AND VOMITING
     Dosage: 150 MG, ONCE
     Route: 042
     Dates: start: 20141006, end: 20141006
  8. DIAZEPAM SAMJIN [Concomitant]
     Indication: PROPHYLAXIS
     Dosage: 2 MG, TID
     Route: 048
     Dates: start: 20141006, end: 20141012
  9. ZYPREXA [Concomitant]
     Active Substance: OLANZAPINE
     Indication: PROPHYLAXIS OF NAUSEA AND VOMITING
     Dosage: 10 MG, QD
     Route: 048
     Dates: start: 20141006, end: 20141009
  10. AD MYCIN VIAL [Concomitant]
     Indication: BREAST CANCER
     Dosage: 102.6 MG, ONCE (CHEMOTHERAPY CYCLE 1)
     Route: 042
     Dates: start: 20141006, end: 20141006
  11. DEXAMETHASONE. [Concomitant]
     Active Substance: DEXAMETHASONE
     Indication: PROPHYLAXIS OF NAUSEA AND VOMITING
     Dosage: 8 MG, QD
     Route: 048
     Dates: start: 20141006, end: 20141008
  12. ENDOXAN [Concomitant]
     Active Substance: CYCLOPHOSPHAMIDE
     Indication: BREAST CANCER
     Dosage: 1026 MG, ONCE (CHEMOTHERAPY CYCLE 1)
     Route: 042
     Dates: start: 20141006, end: 20141006

REACTIONS (4)
  - Hypophagia [Recovered/Resolved]
  - Stomatitis [Recovering/Resolving]
  - Febrile neutropenia [Recovered/Resolved]
  - Dyspnoea [Recovered/Resolved]

NARRATIVE: CASE EVENT DATE: 20141019
